FAERS Safety Report 6875159-7 (Version None)
Quarter: 2010Q3

REPORT INFORMATION
  Report Type: 
  Country: None (occurrence: None)
  Receive Date: 20100727
  Receipt Date: 20100713
  Transmission Date: 20110219
  Serious: Yes (Other)
  Sender: FDA-Public Use
  Company Number: PHHY2010FR47026

PATIENT
  Age: 69 Year
  Sex: Female

DRUGS (8)
  1. ACLASTA [Suspect]
     Indication: OSTEOPOROTIC FRACTURE
     Dosage: UNK
     Route: 042
     Dates: start: 20100624
  2. LIPANTHYL [Concomitant]
     Indication: HYPERCHOLESTEROLAEMIA
     Dosage: UNK
  3. LANSOPRAZOLE [Concomitant]
     Indication: GASTRITIS
     Dosage: UNK
  4. LANSOPRAZOLE [Concomitant]
     Indication: ULCER
  5. IXPRIM [Concomitant]
     Indication: BACK PAIN
     Dosage: UNK
  6. DOLIPRANE [Concomitant]
     Dosage: UNK
  7. LEXOMIL [Concomitant]
     Dosage: UNK
  8. CALPEROS [Concomitant]
     Dosage: UNK

REACTIONS (4)
  - BLISTER [None]
  - HEADACHE [None]
  - PRURITUS [None]
  - PYREXIA [None]
